FAERS Safety Report 7996027-3 (Version None)
Quarter: 2011Q4

REPORT INFORMATION
  Report Type: 
  Country: None (occurrence: None)
  Receive Date: 20111220
  Receipt Date: 20111212
  Transmission Date: 20120403
  Serious: Yes (Hospitalization)
  Sender: FDA-Public Use
  Company Number: PHEH2011US011615

PATIENT
  Age: 51 Year
  Sex: Male

DRUGS (13)
  1. ALBUTEROL [Concomitant]
  2. COLCHICINE [Concomitant]
  3. SUCRALFATE [Concomitant]
  4. NEXIUM [Concomitant]
  5. AMBIEN [Concomitant]
  6. GLEEVEC [Suspect]
     Indication: SOFT TISSUE NEOPLASM
     Dosage: 400 MG (DAILY), UNK
     Route: 048
     Dates: start: 20110201
  7. CRESTOR [Concomitant]
  8. FEXOFENADINE [Concomitant]
  9. LOTREL [Concomitant]
  10. FLUTICASONE PROPIONATE [Concomitant]
  11. THEOPHYLLINE [Concomitant]
  12. HYDROCODONE BITARTRATE [Concomitant]
  13. ADVAIR DISKUS 100/50 [Concomitant]

REACTIONS (3)
  - ULCER [None]
  - GOUT [None]
  - SEPSIS [None]
